FAERS Safety Report 15832261 (Version 3)
Quarter: 2019Q1

REPORT INFORMATION
  Report Type: Report from Study
  Country: NL (occurrence: NL)
  Receive Date: 20190116
  Receipt Date: 20190218
  Transmission Date: 20190417
  Serious: Yes (Death, Hospitalization, Other)
  Sender: FDA-Public Use
  Company Number: NL-TAKEDA-2019TUS000724

PATIENT
  Age: 33 Year
  Sex: Male

DRUGS (1)
  1. VEDOLIZUMAB [Suspect]
     Active Substance: VEDOLIZUMAB
     Indication: CROHN^S DISEASE
     Dosage: 300 UNK, UNK
     Route: 042
     Dates: start: 20181101, end: 20181116

REACTIONS (6)
  - Sepsis [Unknown]
  - Epstein-Barr virus infection [Unknown]
  - Encephalitis viral [Unknown]
  - Bronchopulmonary aspergillosis [Unknown]
  - Multiple organ dysfunction syndrome [Fatal]
  - Diffuse large B-cell lymphoma [Unknown]

NARRATIVE: CASE EVENT DATE: 20181218
